FAERS Safety Report 4619230-9 (Version None)
Quarter: 2005Q1

REPORT INFORMATION
  Report Type: 
  Country: None (occurrence: None)
  Receive Date: 20050325
  Receipt Date: 20041022
  Transmission Date: 20050727
  Serious: Yes (Other)
  Sender: FDA-Public Use
  Company Number: US-AMGEN-US096579

PATIENT
  Sex: Female

DRUGS (8)
  1. ENBREL [Suspect]
     Indication: RHEUMATOID ARTHRITIS
     Dates: start: 20040519, end: 20040920
  2. DOLOBID [Concomitant]
     Dates: start: 20010101
  3. DYAZIDE [Concomitant]
     Dates: start: 20010101
  4. PREVACID [Concomitant]
     Dates: start: 20010101
  5. ZYRTEC [Concomitant]
     Dates: start: 20040101
  6. VICODIN [Concomitant]
  7. LIDOCAINE [Concomitant]
     Dates: start: 20040601
  8. TOPROL-XL [Concomitant]
     Dates: start: 20010101

REACTIONS (3)
  - BASAL CELL CARCINOMA [None]
  - CREATININE RENAL CLEARANCE DECREASED [None]
  - CUTANEOUS LUPUS ERYTHEMATOSUS [None]
